FAERS Safety Report 10699529 (Version 2)
Quarter: 2015Q1

REPORT INFORMATION
  Report Type: Spontaneous
  Country: AU (occurrence: AU)
  Receive Date: 20150109
  Receipt Date: 20150109
  Transmission Date: 20150721
  Serious: Yes (Hospitalization)
  Sender: FDA-Public Use
  Company Number: AU-ACCORD-027988

PATIENT
  Age: 26 Year
  Sex: Male

DRUGS (5)
  1. SERTRALINE [Concomitant]
     Active Substance: SERTRALINE HYDROCHLORIDE
  2. QUETIAPINE/QUETIAPINE FUMARATE [Concomitant]
  3. MIRTAZAPINE. [Concomitant]
     Active Substance: MIRTAZAPINE
  4. CLONAZEPAM. [Suspect]
     Active Substance: CLONAZEPAM
     Indication: PRODUCT USED FOR UNKNOWN INDICATION
  5. OXYCODONE/OXYCODONE HYDROCHLORIDE/OXYCODONE PECTINATE/OXYCODONE TEREPHTHALATE [Suspect]
     Active Substance: OXYCODONE
     Indication: PRODUCT USED FOR UNKNOWN INDICATION

REACTIONS (7)
  - Brain injury [None]
  - Sepsis [None]
  - Intestinal obstruction [Unknown]
  - Pneumonia aspiration [Unknown]
  - Device related infection [Unknown]
  - Hypoglycaemia [None]
  - Toxic encephalopathy [Unknown]
